FAERS Safety Report 9468286 (Version 1)
Quarter: 2013Q3

REPORT INFORMATION
  Report Type: Spontaneous
  Country: US (occurrence: US)
  Receive Date: 20130821
  Receipt Date: 20130821
  Transmission Date: 20140515
  Serious: No
  Sender: FDA-Public Use
  Company Number: US-PFIZER INC-2013241911

PATIENT
  Age: 55 Year
  Sex: Female
  Weight: 77 kg

DRUGS (2)
  1. EFFEXOR XR [Suspect]
     Indication: MAJOR DEPRESSION
     Dosage: 300 MG (TWO CAPSULES OF 150MG), 1X/DAY
     Route: 048
     Dates: start: 2002
  2. WELLBUTRIN XL [Concomitant]
     Dosage: UNK

REACTIONS (4)
  - Dizziness [Unknown]
  - Malaise [Unknown]
  - Pain [Unknown]
  - Presyncope [Unknown]
